FAERS Safety Report 6254186-7 (Version None)
Quarter: 2009Q2

REPORT INFORMATION
  Report Type: 
  Country: None (occurrence: None)
  Receive Date: 20090630
  Receipt Date: 20081023
  Transmission Date: 20091009
  Serious: Yes (Hospitalization)
  Sender: FDA-Public Use
  Company Number: WAES 0810USA04329

PATIENT
  Age: 50 Year
  Sex: Female

DRUGS (1)
  1. HYZAAR [Suspect]
     Dosage: PO
     Route: 048

REACTIONS (2)
  - BLOOD GLUCOSE INCREASED [None]
  - RENAL FAILURE [None]
